FAERS Safety Report 10759229 (Version 1)
Quarter: 2015Q1

REPORT INFORMATION
  Report Type: Spontaneous
  Country: US (occurrence: US)
  Receive Date: 20150203
  Receipt Date: 20150203
  Transmission Date: 20150721
  Serious: Yes (Congenital Anomaly, Other)
  Sender: FDA-Public Use
  Company Number: US-PFIZER INC-2015041348

PATIENT

DRUGS (3)
  1. ZOLOFT [Suspect]
     Active Substance: SERTRALINE HYDROCHLORIDE
     Indication: AFFECTIVE DISORDER
  2. ZOLOFT [Suspect]
     Active Substance: SERTRALINE HYDROCHLORIDE
     Indication: ANXIETY
     Dosage: UNK
     Route: 064
  3. ZOLOFT [Suspect]
     Active Substance: SERTRALINE HYDROCHLORIDE
     Indication: DEPRESSION

REACTIONS (6)
  - Nervous system disorder [Unknown]
  - Maternal exposure during pregnancy [Unknown]
  - Congenital skin dimples [Unknown]
  - Intestinal malrotation [Unknown]
  - Volvulus [Unknown]
  - Congenital anomaly [Unknown]

NARRATIVE: CASE EVENT DATE: 20080326
